FAERS Safety Report 7786315-8 (Version None)
Quarter: 2011Q3

REPORT INFORMATION
  Report Type: 
  Country: None (occurrence: None)
  Receive Date: 20110929
  Receipt Date: 20110921
  Transmission Date: 20111222
  Serious: Yes (Hospitalization)
  Sender: FDA-Public Use
  Company Number: PHHY2011CH84220

PATIENT
  Age: 69 Year
  Sex: Female

DRUGS (13)
  1. TRILEPTAL [Suspect]
     Dosage: 450 MG,
     Route: 048
     Dates: start: 20110816, end: 20110816
  2. PRAVASTATIN SODIUM [Concomitant]
     Dosage: 1 DF, DAILY
     Route: 048
     Dates: end: 20110814
  3. TRILEPTAL [Suspect]
     Dosage: 300 MG, DAILY
     Route: 048
     Dates: start: 20110701, end: 20110813
  4. TRILEPTAL [Suspect]
     Dosage: 600 MG, DAILY
     Route: 048
     Dates: start: 20110814, end: 20110815
  5. TRILEPTAL [Suspect]
     Dosage: 300 MG, DAILY
     Route: 048
     Dates: start: 20110817, end: 20110818
  6. OMEPRAZOLE [Concomitant]
     Dosage: 20 MG, DAILY
     Route: 048
  7. CALCIMAGON-D3 [Concomitant]
     Dosage: 1 DF, DAILY
     Route: 048
  8. CANDESARTAN CILEXETIL/HYDROCHLOROTHIAZIDE [Concomitant]
     Dosage: 1 DF, DAILY
     Route: 048
  9. NOVALGIN [Concomitant]
     Dosage: 60 DRP, DAILY
     Route: 048
  10. ASPIRIN [Concomitant]
     Dosage: 100 MG, DAILY
     Route: 048
  11. TRILEPTAL [Suspect]
     Dosage: 1200 MG, EVERY DAY
     Route: 048
  12. LERCANIDIPINE [Concomitant]
     Dosage: 2 DF, DAILY
     Route: 048
  13. ACIDUM FOLICUM [Concomitant]
     Dosage: 5 MG, DAILY
     Route: 048

REACTIONS (6)
  - INAPPROPRIATE ANTIDIURETIC HORMONE SECRETION [None]
  - BLOOD OSMOLARITY DECREASED [None]
  - URINE SODIUM INCREASED [None]
  - PAIN [None]
  - HYPONATRAEMIA [None]
  - GAIT DISTURBANCE [None]
